FAERS Safety Report 9325029 (Version 3)
Quarter: 2013Q2

REPORT INFORMATION
  Report Type: Spontaneous
  Country: US (occurrence: US)
  Receive Date: 20130603
  Receipt Date: 20130620
  Transmission Date: 20140414
  Serious: Yes (Other)
  Sender: FDA-Public Use
  Company Number: US-ASTRAZENECA-2011SE76270

PATIENT
  Age: 81 Year
  Sex: Female

DRUGS (12)
  1. METOPROLOL TARTRATE [Suspect]
     Indication: HYPERTENSION
     Route: 048
  2. METOPROLOL TARTRATE [Suspect]
     Indication: CARDIAC DISORDER
     Route: 048
  3. LISINOPRIL [Suspect]
     Indication: HYPERTENSION
     Route: 065
  4. CRESTOR [Suspect]
     Indication: BLOOD CHOLESTEROL ABNORMAL
     Route: 048
     Dates: end: 2012
  5. SIMVASTATIN [Suspect]
     Dosage: 10 MILLIGRAMS
     Route: 065
     Dates: end: 2012
  6. SIMVASTATIN [Suspect]
     Dosage: 20 MILLIGRAMS
     Route: 065
  7. BLOOD PRESURE MEDICATION [Concomitant]
     Indication: BLOOD PRESSURE ABNORMAL
  8. COQ10 [Concomitant]
     Indication: DRUG THERAPY
     Route: 048
  9. KLOR-CON [Concomitant]
     Indication: SUPPLEMENTATION THERAPY
     Route: 048
  10. HYDROCHLOROTHIAZIDE [Concomitant]
     Indication: HYPERTENSION
     Route: 048
  11. HYDROCHLOROTHIAZIDE [Concomitant]
     Indication: CARDIAC DISORDER
     Route: 048
  12. LANSOPRAZOLE [Concomitant]
     Indication: GASTROOESOPHAGEAL REFLUX DISEASE
     Route: 065

REACTIONS (19)
  - Blood pressure increased [Unknown]
  - Back pain [Unknown]
  - Neck pain [Unknown]
  - Alopecia [Unknown]
  - Pain in extremity [Not Recovered/Not Resolved]
  - Muscle spasms [Unknown]
  - Drug dose omission [Unknown]
  - Local swelling [Not Recovered/Not Resolved]
  - Muscle spasms [Not Recovered/Not Resolved]
  - Vomiting [Recovered/Resolved]
  - Muscle spasms [Not Recovered/Not Resolved]
  - Diarrhoea [Recovered/Resolved]
  - Dehydration [Recovered/Resolved]
  - Body height decreased [Unknown]
  - Weight decreased [Unknown]
  - Gastrooesophageal reflux disease [Unknown]
  - Malaise [Recovered/Resolved]
  - Intentional drug misuse [Unknown]
  - Drug effect decreased [Unknown]
